FAERS Safety Report 17326442 (Version 1)
Quarter: 2020Q1

REPORT INFORMATION
  Report Type: Report from Study
  Country: IT (occurrence: IT)
  Receive Date: 20200127
  Receipt Date: 20200127
  Transmission Date: 20200409
  Serious: Yes (Other)
  Sender: FDA-Public Use
  Company Number: IT-MYLANLABS-2020M1008258

PATIENT
  Sex: Female

DRUGS (4)
  1. DOXORUBICIN [Suspect]
     Active Substance: DOXORUBICIN
     Indication: BREAST NEOPLASM
     Dosage: UNK UNK, CYCLE (4 CYCLES)
     Route: 065
     Dates: start: 201502, end: 201508
  2. PACLITAXEL. [Suspect]
     Active Substance: PACLITAXEL
     Indication: BREAST NEOPLASM
     Dosage: UNK (12 WEAKS)
     Route: 065
     Dates: start: 201502, end: 201508
  3. CYCLOPHOSPHAMIDE. [Suspect]
     Active Substance: CYCLOPHOSPHAMIDE
     Indication: BREAST NEOPLASM
     Dosage: UNK UNK, CYCLE (4 CYCLES)
     Route: 065
     Dates: start: 201502, end: 201508
  4. CARBOPLATIN. [Suspect]
     Active Substance: CARBOPLATIN
     Indication: BREAST NEOPLASM
     Dosage: UNK (12 WEAKS)
     Route: 065
     Dates: start: 201502, end: 201508

REACTIONS (2)
  - Alopecia [Unknown]
  - Product use in unapproved indication [Unknown]
